FAERS Safety Report 7767372-1 (Version None)
Quarter: 2011Q3

REPORT INFORMATION
  Report Type: 
  Country: None (occurrence: None)
  Receive Date: 20110922
  Receipt Date: 20100902
  Transmission Date: 20111222
  Serious: Yes (Other)
  Sender: FDA-Public Use
  Company Number: US-ASTRAZENECA-2007UW18779

PATIENT
  Age: 16832 Day
  Sex: Male
  Weight: 117.9 kg

DRUGS (9)
  1. SEROQUEL [Suspect]
     Indication: ANXIETY
     Route: 048
     Dates: start: 20000720
  2. ZYPREXA [Concomitant]
     Dates: start: 20000101, end: 20020101
  3. NEURONTIN [Concomitant]
     Dosage: 100-300 MG
     Route: 048
  4. RISPERDAL [Concomitant]
  5. SEROQUEL [Suspect]
     Route: 048
     Dates: start: 19991207, end: 20020326
  6. PAXIL [Concomitant]
     Dosage: 20-30 MG
     Route: 048
  7. SEROQUEL [Suspect]
     Indication: DEPRESSION
     Route: 048
     Dates: start: 20000720
  8. CELEBREX [Concomitant]
     Route: 065
  9. SEROQUEL [Suspect]
     Route: 048
     Dates: start: 19991207, end: 20020326

REACTIONS (6)
  - ANHEDONIA [None]
  - ARTHRALGIA [None]
  - ERECTILE DYSFUNCTION [None]
  - BACK PAIN [None]
  - TYPE 2 DIABETES MELLITUS [None]
  - MENTAL STATUS CHANGES [None]
